FAERS Safety Report 12936187 (Version 1)
Quarter: 2016Q4

REPORT INFORMATION
  Report Type: Spontaneous
  Country: US (occurrence: US)
  Receive Date: 20161112
  Receipt Date: 20161112
  Transmission Date: 20170207
  Serious: Yes (Hospitalization)
  Sender: FDA-Public Use
  Company Number: None

PATIENT
  Age: 17 Year
  Sex: Male
  Weight: 133.3 kg

DRUGS (11)
  1. DOXORUBICIN HYDROCHLORIDE. [Suspect]
     Active Substance: DOXORUBICIN HYDROCHLORIDE
     Dates: end: 20161101
  2. GABAPENTIN. [Concomitant]
     Active Substance: GABAPENTIN
  3. HUMALOG [Concomitant]
     Active Substance: INSULIN LISPRO
  4. VINCRISTINE SULFATE. [Suspect]
     Active Substance: VINCRISTINE SULFATE
     Dates: end: 20161101
  5. METHOTREXATE. [Suspect]
     Active Substance: METHOTREXATE
     Dates: end: 20161019
  6. LANTUS [Concomitant]
     Active Substance: INSULIN GLARGINE
  7. ENOXAPARIN [Concomitant]
     Active Substance: ENOXAPARIN
  8. ONCASPAR [Suspect]
     Active Substance: PEGASPARGASE
     Dates: end: 20161022
  9. ONDANSETRON [Concomitant]
     Active Substance: ONDANSETRON
  10. DEXAMETHASONE. [Suspect]
     Active Substance: DEXAMETHASONE
     Dates: end: 20161107
  11. SULFAMETHOXAZOLE-TRIMETHOPRIM [Concomitant]
     Active Substance: SULFAMETHOXAZOLE\TRIMETHOPRIM

REACTIONS (11)
  - Nausea [None]
  - Vomiting [None]
  - Jugular vein thrombosis [None]
  - Device related thrombosis [None]
  - Venous thrombosis [None]
  - Peripheral swelling [None]
  - Hypoaesthesia [None]
  - Paraesthesia [None]
  - Blood glucose increased [None]
  - Axillary vein thrombosis [None]
  - Device related infection [None]

NARRATIVE: CASE EVENT DATE: 20161108
